FAERS Safety Report 7040656-0 (Version None)
Quarter: 2010Q4

REPORT INFORMATION
  Report Type: 
  Country: None (occurrence: None)
  Receive Date: 20101013
  Receipt Date: 20101004
  Transmission Date: 20110411
  Serious: Yes (Other)
  Sender: FDA-Public Use
  Company Number: US-AMGEN-TCS420102

PATIENT
  Sex: Female
  Weight: 67.2 kg

DRUGS (7)
  1. ENBREL [Suspect]
     Indication: RHEUMATOID ARTHRITIS
     Route: 058
     Dates: start: 20090501, end: 20100401
  2. ARAVA [Concomitant]
     Route: 048
  3. LORTAB [Concomitant]
  4. LEXAPRO [Concomitant]
  5. MOBIC [Concomitant]
  6. MORPHINE [Concomitant]
     Dates: start: 20090101
  7. CORTISONE [Concomitant]

REACTIONS (20)
  - APPETITE DISORDER [None]
  - ARTHRALGIA [None]
  - BURNING SENSATION [None]
  - DEPRESSION [None]
  - DIZZINESS [None]
  - DYSPNOEA [None]
  - HOT FLUSH [None]
  - HYPOACUSIS [None]
  - INSOMNIA [None]
  - JOINT STIFFNESS [None]
  - JOINT SWELLING [None]
  - LETHARGY [None]
  - MALAISE [None]
  - MYELITIS TRANSVERSE [None]
  - NIGHT SWEATS [None]
  - OEDEMA PERIPHERAL [None]
  - PAIN [None]
  - PAIN IN EXTREMITY [None]
  - WEIGHT FLUCTUATION [None]
  - WHEEZING [None]
